FAERS Safety Report 20315007 (Version 1)
Quarter: 2022Q1

REPORT INFORMATION
  Report Type: Spontaneous
  Country: US (occurrence: None)
  Receive Date: 20220110
  Receipt Date: 20220110
  Transmission Date: 20220423
  Serious: No
  Sender: FDA-Public Use
  Company Number: US-ROCHE-2741298

PATIENT
  Sex: Female

DRUGS (3)
  1. RITUXAN [Suspect]
     Active Substance: RITUXIMAB
     Indication: Systemic lupus erythematosus
     Dosage: IV ON DAY 1 AND DAY 15 EVERY 6 MONTHS.; OTHER;
     Route: 042
     Dates: start: 20201201
  2. RITUXAN [Suspect]
     Active Substance: RITUXIMAB
     Dosage: IV ON DAY 1 AND DAY 15 EVERY 6 MONTHS.; OTHER;
     Route: 042
     Dates: start: 20210104, end: 20210120
  3. MYCOPHENOLATE MOFETIL [Concomitant]
     Active Substance: MYCOPHENOLATE MOFETIL
     Route: 048
     Dates: start: 20201029, end: 20210414

REACTIONS (2)
  - Off label use [Unknown]
  - No adverse event [Unknown]
